FAERS Safety Report 7075691-X (Version None)
Quarter: 2010Q4

REPORT INFORMATION
  Report Type: 
  Country: None (occurrence: None)
  Receive Date: 20101031
  Receipt Date: 20101018
  Transmission Date: 20110411
  Serious: Yes (Other)
  Sender: FDA-Public Use
  Company Number: PHHY2010MX70432

PATIENT
  Age: 78 Year
  Sex: Female

DRUGS (2)
  1. DIOVAN HCT [Suspect]
     Indication: HYPERTENSION
     Dosage: 1 TABLET (80/12.5 MG) PER DAY
     Dates: start: 20050501
  2. PENICILLIN [Suspect]
     Dosage: UNK

REACTIONS (4)
  - DRUG TOXICITY [None]
  - PRURITUS [None]
  - PYREXIA [None]
  - RASH GENERALISED [None]
